FAERS Safety Report 5164648-1 (Version None)
Quarter: 2006Q4

REPORT INFORMATION
  Report Type: 
  Country: None (occurrence: None)
  Receive Date: 20061205
  Receipt Date: 20060731
  Transmission Date: 20070319
  Serious: Yes (Disabling)
  Sender: FDA-Public Use
  Company Number: JP-ELI_LILLY_AND_COMPANY-JP200608000885

PATIENT
  Age: 60 Year
  Sex: Male
  Weight: 51 kg

DRUGS (8)
  1. HUMULIN 70/30 [Suspect]
     Indication: DIABETES MELLITUS
     Dosage: 14 U, UNK
     Route: 058
     Dates: start: 20060422, end: 20060515
  2. HUMULIN 70/30 [Suspect]
     Dosage: 12 U, UNK
     Route: 058
     Dates: start: 20060516, end: 20060612
  3. HUMULIN 70/30 [Suspect]
     Dosage: 13 U, UNK
     Route: 058
     Dates: start: 20060613, end: 20060708
  4. HUMULIN R [Concomitant]
     Indication: DIABETES MELLITUS
     Dosage: 13 U, UNK
     Route: 058
     Dates: start: 20060407, end: 20060422
  5. KINEDAK [Concomitant]
     Indication: DIABETIC NEPHROPATHY
     Dosage: 150 MG, UNK
     Route: 048
     Dates: start: 20050704, end: 20060422
  6. VOGLIBOSE [Concomitant]
     Dosage: 3 D/F, UNK
     Route: 048
     Dates: start: 20050704, end: 20060422
  7. MEXITIL [Concomitant]
     Indication: DIABETIC NEPHROPATHY
     Dosage: 2 D/F, UNK
     Route: 048
     Dates: start: 20050822, end: 20060422
  8. MEROPEN [Concomitant]
     Indication: PNEUMONIA
     Dosage: 2 G, UNK
     Route: 042
     Dates: start: 20060415, end: 20060422

REACTIONS (1)
  - URTICARIA GENERALISED [None]
